FAERS Safety Report 21667274 (Version 7)
Quarter: 2023Q1

REPORT INFORMATION
  Report Type: Spontaneous
  Country: FR (occurrence: FR)
  Receive Date: 20221201
  Receipt Date: 20230214
  Transmission Date: 20230417
  Serious: Yes (Death, Life-Threatening, Other)
  Sender: FDA-Public Use
  Company Number: FR-PFIZER INC-2006010649

PATIENT
  Age: 72 Year
  Sex: Female

DRUGS (6)
  1. CELEBREX [Suspect]
     Active Substance: CELECOXIB
     Indication: Ill-defined disorder
     Dosage: 1 DOSAGE FORM, QD
     Route: 048
     Dates: start: 20040101
  2. PRAZOSIN [Suspect]
     Active Substance: PRAZOSIN
     Indication: Ill-defined disorder
     Dosage: 1 DOSAGE FORM, QD
     Route: 048
     Dates: start: 20020101, end: 20040101
  3. PIRACETAM [Suspect]
     Active Substance: PIRACETAM
     Indication: Ill-defined disorder
     Dosage: 3 DOSAGE FORM, QD
     Route: 065
     Dates: start: 20020101, end: 20040101
  4. LEVOTHYROXINE [Suspect]
     Active Substance: LEVOTHYROXINE
     Indication: Ill-defined disorder
     Dosage: 1 DOSAGE FORM, QD
     Route: 048
     Dates: start: 20040101
  5. VIOXX [Suspect]
     Active Substance: ROFECOXIB
     Indication: Ill-defined disorder
     Dosage: 1 DOSAGE FORM, QD
     Route: 048
     Dates: start: 20020101, end: 20040101
  6. BISOPROLOL FUMARATE [Suspect]
     Active Substance: BISOPROLOL FUMARATE
     Indication: Ill-defined disorder
     Dosage: 10 MILLIGRAM, QD (1 DF, QD)
     Route: 048
     Dates: start: 20020101, end: 20040101

REACTIONS (12)
  - Cerebrovascular accident [Fatal]
  - Tinnitus [Unknown]
  - Coma [Unknown]
  - Type 2 diabetes mellitus [Unknown]
  - Migraine [Unknown]
  - Somnambulism [Unknown]
  - Chest pain [Unknown]
  - Mood altered [Unknown]
  - Arthralgia [Unknown]
  - Haematoma [Unknown]
  - Blood glucose abnormal [Unknown]
  - Hypertension [Unknown]

NARRATIVE: CASE EVENT DATE: 20040101
